FAERS Safety Report 14758525 (Version 1)
Quarter: 2018Q2

REPORT INFORMATION
  Report Type: Spontaneous
  Country: US (occurrence: US)
  Receive Date: 20180413
  Receipt Date: 20180413
  Transmission Date: 20180711
  Serious: No
  Sender: FDA-Public Use
  Company Number: US-ASTRAZENECA-2018SE43878

PATIENT
  Age: 51 Year
  Sex: Female
  Weight: 67.6 kg

DRUGS (4)
  1. VITAMINS NOS [Concomitant]
     Active Substance: VITAMINS
     Dosage: UNKNOWN
     Route: 065
  2. NEXIUM [Suspect]
     Active Substance: ESOMEPRAZOLE MAGNESIUM
     Indication: GASTROOESOPHAGEAL REFLUX DISEASE
     Route: 048
     Dates: start: 201304
  3. NEXIUM [Suspect]
     Active Substance: ESOMEPRAZOLE MAGNESIUM
     Indication: GASTROOESOPHAGEAL REFLUX DISEASE
     Route: 048
     Dates: start: 20140310, end: 201501
  4. NEXIUM 24HR [Suspect]
     Active Substance: ESOMEPRAZOLE MAGNESIUM
     Indication: GASTROOESOPHAGEAL REFLUX DISEASE
     Route: 048
     Dates: start: 20170518

REACTIONS (25)
  - Asthenia [Unknown]
  - Fatigue [Unknown]
  - Feeling abnormal [Unknown]
  - Inguinal hernia [Unknown]
  - Vomiting [Unknown]
  - Axillary mass [Unknown]
  - Pain in extremity [Unknown]
  - Tongue discolouration [Unknown]
  - Tooth discolouration [Unknown]
  - Fibromyalgia [Unknown]
  - Muscle tightness [Unknown]
  - Visual impairment [Unknown]
  - Dyspnoea [Unknown]
  - Attention deficit/hyperactivity disorder [Unknown]
  - Salivary hypersecretion [Unknown]
  - Pain [Unknown]
  - Eating disorder [Unknown]
  - Cognitive disorder [Unknown]
  - Speech disorder [Unknown]
  - Hypersensitivity [Unknown]
  - Pituitary cyst [Unknown]
  - Cardiac disorder [Unknown]
  - Vomiting [Unknown]
  - Intestinal metaplasia [Unknown]
  - Swelling [Unknown]

NARRATIVE: CASE EVENT DATE: 2013
